FAERS Safety Report 17017840 (Version 1)
Quarter: 2019Q4

REPORT INFORMATION
  Report Type: Spontaneous
  Country: US (occurrence: US)
  Receive Date: 20191111
  Receipt Date: 20191111
  Transmission Date: 20200122
  Serious: Yes (Other)
  Sender: FDA-Public Use
  Company Number: US-GLAXOSMITHKLINE-US2019203575

PATIENT
  Sex: Female

DRUGS (1)
  1. TUMS [Suspect]
     Active Substance: CALCIUM CARBONATE
     Indication: GASTROOESOPHAGEAL REFLUX DISEASE
     Dosage: UNK

REACTIONS (2)
  - Nephrolithiasis [Unknown]
  - Product use in unapproved indication [Unknown]
